FAERS Safety Report 4652654-2 (Version None)
Quarter: 2005Q2

REPORT INFORMATION
  Report Type: 
  Country: None (occurrence: None)
  Receive Date: 20050502
  Receipt Date: 20050419
  Transmission Date: 20051028
  Serious: Yes (Other)
  Sender: FDA-Public Use
  Company Number: 2005063264

PATIENT
  Age: 35 Year
  Sex: Female

DRUGS (1)
  1. BEXTRA [Suspect]
     Indication: ANTIINFLAMMATORY THERAPY
     Dosage: 80 MG (40 MG, 2 IN 1 D) ORAL
     Route: 048
     Dates: start: 20041219, end: 20041219

REACTIONS (3)
  - RASH PAPULAR [None]
  - SYSTEMIC LUPUS ERYTHEMATOSUS [None]
  - TACHYCARDIA [None]
